FAERS Safety Report 8975680 (Version 1)
Quarter: 2012Q4

REPORT INFORMATION
  Report Type: 
  Country: ES (occurrence: ES)
  Receive Date: 20121219
  Receipt Date: 20121219
  Transmission Date: 20130627
  Serious: Yes (Death, Other)
  Sender: FDA-Public Use
  Company Number: ES-VERTEX PHARMACEUTICALS INC.-2012-026450

PATIENT
  Age: 64 Year
  Sex: Female
  Weight: 80 kg

DRUGS (11)
  1. INCIVO [Suspect]
     Indication: HEPATITIS C
     Dosage: Dosage Form: Tablet
     Route: 048
     Dates: start: 20121017, end: 20121125
  2. RIBAVIRIN [Concomitant]
     Indication: HEPATITIS C
     Route: 048
     Dates: start: 20120911
  3. PEGINTERFERON ALFA-2B [Concomitant]
     Indication: HEPATITIS C
     Route: 058
     Dates: start: 20120911
  4. IDAPTAN [Concomitant]
     Indication: HYPERTENSION
     Dosage: 20 mg, qd
     Route: 048
     Dates: start: 20120507
  5. SPIRONOLACTONE [Concomitant]
     Indication: PROPHYLAXIS
     Dosage: 100 mg, qd
     Route: 048
     Dates: start: 20120507
  6. DESLORATADINE [Concomitant]
     Indication: PRURITUS
     Dosage: 10 mg, qd
     Route: 048
     Dates: start: 20121030
  7. OMEPRAZOLE [Concomitant]
     Indication: PROPHYLAXIS
     Dosage: 20 mg, qd
     Route: 048
     Dates: start: 20121030
  8. ALMAGATE [Concomitant]
     Indication: PROPHYLAXIS
     Dosage: 1.5 g, qd
     Route: 048
     Dates: start: 20121030
  9. METOCLOPRAMIDE [Concomitant]
     Indication: PROPHYLAXIS
     Dosage: 10 mg, qd
     Route: 048
     Dates: start: 20121030
  10. FUROSEMIDE [Concomitant]
     Indication: PROPHYLAXIS
     Dosage: 40 mg, qd
     Route: 048
     Dates: start: 20120507
  11. NEBIVOLOL [Concomitant]
     Indication: HYPERTENSION
     Dosage: 5 mg, qd
     Route: 048
     Dates: start: 20120507

REACTIONS (8)
  - Staphylococcal sepsis [Fatal]
  - Cardiac arrest [Fatal]
  - Gastrointestinal disorder [Unknown]
  - Hepatic failure [Fatal]
  - Liver disorder [Fatal]
  - Hepatic encephalopathy [Fatal]
  - Anaemia [Unknown]
  - Pruritus [Unknown]
